FAERS Safety Report 17886148 (Version 1)
Quarter: 2020Q2

REPORT INFORMATION
  Report Type: Report from Study
  Country: US (occurrence: US)
  Receive Date: 20200611
  Receipt Date: 20200611
  Transmission Date: 20200714
  Serious: Yes (Death)
  Sender: FDA-Public Use
  Company Number: US-BAUSCH-BL-2020-016754

PATIENT
  Age: 69 Year
  Sex: Male

DRUGS (1)
  1. XIFAXAN [Suspect]
     Active Substance: RIFAXIMIN
     Indication: LIVER DISORDER
     Dosage: HAD TAKEN XIFAXAN FOR 6-7 MONTHS
     Route: 048
     Dates: start: 2019

REACTIONS (3)
  - Disease complication [Fatal]
  - Cardiac failure [Fatal]
  - Pulmonary hypertension [Fatal]
